FAERS Safety Report 5072157-3 (Version None)
Quarter: 2006Q3

REPORT INFORMATION
  Report Type: 
  Country: None (occurrence: None)
  Receive Date: 20060807
  Receipt Date: 20060727
  Transmission Date: 20061208
  Serious: Yes (Death, Hospitalization)
  Sender: FDA-Public Use
  Company Number: US-JNJFOC-20060705699

PATIENT
  Sex: Female
  Weight: 56.7 kg

DRUGS (8)
  1. REMICADE [Suspect]
     Indication: TEMPORAL ARTERITIS
     Route: 042
  2. REMICADE [Suspect]
     Indication: RHEUMATOID ARTHRITIS
     Route: 042
  3. METHOTREXATE [Concomitant]
     Indication: RHEUMATOID ARTHRITIS
  4. ARAVA [Concomitant]
     Indication: RHEUMATOID ARTHRITIS
  5. PREDNISONE TAB [Concomitant]
     Indication: RHEUMATOID ARTHRITIS
  6. ALTACE [Concomitant]
     Indication: BLOOD PRESSURE
  7. CALCIUM PLUS D [Concomitant]
  8. FOSAMAX [Concomitant]

REACTIONS (5)
  - CANDIDIASIS [None]
  - DEHYDRATION [None]
  - FUNGAL SEPSIS [None]
  - HERPES OESOPHAGITIS [None]
  - PLEURAL EFFUSION [None]
